FAERS Safety Report 6709068-0 (Version None)
Quarter: 2010Q2

REPORT INFORMATION
  Report Type: 
  Country: None (occurrence: None)
  Receive Date: 20100504
  Receipt Date: 20100422
  Transmission Date: 20101027
  Serious: Yes (Hospitalization)
  Sender: FDA-Public Use
  Company Number: US-JNJFOC-20100405082

PATIENT
  Sex: Female
  Weight: 44.1 kg

DRUGS (12)
  1. PLACEBO (GOLIMUMAB) [Suspect]
     Indication: COLITIS ULCERATIVE
     Route: 058
  2. PLACEBO [Suspect]
     Route: 058
  3. PLACEBO [Suspect]
     Route: 058
  4. PLACEBO [Suspect]
     Route: 058
  5. ZOLOFT [Concomitant]
     Indication: PREMENSTRUAL SYNDROME
     Route: 048
  6. ALEVE (CAPLET) [Concomitant]
     Indication: CARPAL TUNNEL SYNDROME
     Route: 048
  7. ALEVE (CAPLET) [Concomitant]
     Indication: HEADACHE
     Route: 048
  8. IBUPROFEN [Concomitant]
     Indication: CARPAL TUNNEL SYNDROME
     Route: 048
  9. IBUPROFEN [Concomitant]
     Indication: HEADACHE
     Route: 048
  10. RIFAMPIN [Concomitant]
     Indication: LATENT TUBERCULOSIS
     Route: 048
  11. ADVIL COLD AND SINUS [Concomitant]
     Indication: NASAL CONGESTION
     Route: 048
  12. TYLENOL-500 [Concomitant]
     Indication: PYREXIA
     Route: 048

REACTIONS (1)
  - DEEP VEIN THROMBOSIS [None]
